FAERS Safety Report 10984158 (Version 1)
Quarter: 2015Q2

REPORT INFORMATION
  Report Type: Spontaneous
  Country: JP (occurrence: JP)
  Receive Date: 20150403
  Receipt Date: 20150403
  Transmission Date: 20150821
  Serious: Yes (Death)
  Sender: FDA-Public Use
  Company Number: JP-MALLINCKRODT-T201501871

PATIENT
  Age: 77 Year
  Sex: Female
  Weight: 40 kg

DRUGS (16)
  1. AMLODIPINE [Concomitant]
     Active Substance: AMLODIPINE BESYLATE
     Dosage: 5 MG
     Route: 048
  2. OXYFAST [Concomitant]
     Active Substance: OXYCODONE
     Dosage: 1.25 MG, P.R.N.
     Route: 042
     Dates: start: 20150129, end: 20150201
  3. TRAVELMIN [Concomitant]
     Active Substance: DIMENHYDRINATE
     Dosage: 1 DF
     Route: 048
     Dates: start: 20150120
  4. KETALAR [Concomitant]
     Active Substance: KETAMINE HYDROCHLORIDE
     Dosage: 0.25 MG, P.R.N.
     Route: 042
     Dates: start: 20150129
  5. RINDERON V [Concomitant]
     Active Substance: BETAMETHASONE VALERATE
     Dosage: 30 MG
     Route: 048
     Dates: start: 20150122, end: 20150206
  6. NOLVADEX [Concomitant]
     Active Substance: TAMOXIFEN CITRATE
     Dosage: 20 MG
     Route: 048
  7. MORPHINE HYDROCHLORIDE [Concomitant]
     Active Substance: MORPHINE HYDROCHLORIDE
     Dosage: 1 MG, P.R.N.
     Route: 042
     Dates: start: 20140202
  8. OLIVES [Concomitant]
     Dosage: 9.5 MG, P.R.N.
     Route: 042
     Dates: start: 20150202
  9. OLIVES [Concomitant]
     Dosage: 8.5 MG, P.R.N.
     Route: 042
     Dates: start: 20150129, end: 20150201
  10. MAGLAX [Concomitant]
     Active Substance: MAGNESIUM OXIDE
     Dosage: 1980 MG
     Route: 048
     Dates: start: 20131128
  11. METHADONE [Suspect]
     Active Substance: METHADONE HYDROCHLORIDE
     Indication: CANCER PAIN
     Dosage: 5MG (DAILY DOSE 15MG)
     Route: 048
     Dates: start: 20150130, end: 20150213
  12. MORPHINE HYDROCHLORIDE [Concomitant]
     Active Substance: MORPHINE HYDROCHLORIDE
     Dosage: 2 MG, P.R.N.
     Route: 042
     Dates: end: 20140212
  13. KETALAR [Concomitant]
     Active Substance: KETAMINE HYDROCHLORIDE
     Dosage: 0.5 MG, P.R.N.
     Route: 042
     Dates: end: 20140212
  14. OLIVES [Concomitant]
     Dosage: 9 MG, P.R.N.
     Route: 042
     Dates: end: 20140212
  15. NEXIUM [Concomitant]
     Active Substance: ESOMEPRAZOLE MAGNESIUM
     Dosage: 20 MG
     Route: 048
     Dates: start: 20131202
  16. SOLDEM 3A [Concomitant]
     Active Substance: CARBOHYDRATES\POTASSIUM CHLORIDE\SODIUM CHLORIDE\SODIUM LACTATE
     Dosage: 1 DF
     Route: 051
     Dates: start: 20150123, end: 20150205

REACTIONS (1)
  - Nasal sinus cancer [Fatal]
